FAERS Safety Report 8254805-X (Version None)
Quarter: 2012Q2

REPORT INFORMATION
  Report Type: 
  Country: None (occurrence: None)
  Receive Date: 20120403
  Receipt Date: 20120329
  Transmission Date: 20120825
  Serious: Yes (Other)
  Sender: FDA-Public Use
  Company Number: PHHY2012FR027459

PATIENT
  Age: 49 Year
  Sex: Female

DRUGS (1)
  1. GLEEVEC [Suspect]
     Indication: GASTROINTESTINAL STROMAL TUMOUR
     Dosage: 400 MG, UNK

REACTIONS (4)
  - VENOUS STENOSIS [None]
  - TINNITUS [None]
  - THROMBOCYTOPENIA [None]
  - HEPATIC ENZYME INCREASED [None]
